FAERS Safety Report 21869733 (Version 1)
Quarter: 2023Q1

REPORT INFORMATION
  Report Type: Spontaneous
  Country: US (occurrence: US)
  Receive Date: 20230117
  Receipt Date: 20230117
  Transmission Date: 20230417
  Serious: No
  Sender: FDA-Public Use
  Company Number: US-AUROBINDO-AUR-APL-2022-043639

PATIENT
  Age: 70 Year
  Sex: Male
  Weight: 93.44 kg

DRUGS (1)
  1. DEXAMETHASONE SODIUM PHOSPHATE [Suspect]
     Active Substance: DEXAMETHASONE SODIUM PHOSPHATE
     Indication: Nausea
     Dosage: 2 MILLIGRAM, ONCE A DAY
     Route: 065
     Dates: start: 20221012, end: 20221012

REACTIONS (3)
  - Pain in jaw [Recovered/Resolved]
  - Chest pain [Recovered/Resolved]
  - Product contamination [Unknown]

NARRATIVE: CASE EVENT DATE: 20221012
